FAERS Safety Report 14182363 (Version 1)
Quarter: 2017Q4

REPORT INFORMATION
  Report Type: Spontaneous
  Country: CA (occurrence: CA)
  Receive Date: 20171113
  Receipt Date: 20171113
  Transmission Date: 20180321
  Serious: Yes (Death, Life-Threatening, Hospitalization, Other)
  Sender: FDA-Public Use
  Company Number: CA-009507513-1711CAN001649

PATIENT
  Sex: Female

DRUGS (1)
  1. KEYTRUDA [Suspect]
     Active Substance: PEMBROLIZUMAB
     Indication: NON-SMALL CELL LUNG CANCER
     Dosage: DOSE STRENGTH:200 MG, EVERY 21 DAYS
     Route: 042
     Dates: start: 20170919, end: 2017

REACTIONS (4)
  - Pneumonia [Unknown]
  - Toxic epidermal necrolysis [Fatal]
  - Respiratory failure [Fatal]
  - Pulmonary embolism [Unknown]

NARRATIVE: CASE EVENT DATE: 2017
